FAERS Safety Report 21300643 (Version 3)
Quarter: 2022Q4

REPORT INFORMATION
  Report Type: Report from Study
  Country: US (occurrence: US)
  Receive Date: 20220907
  Receipt Date: 20221021
  Transmission Date: 20230113
  Serious: Yes (Hospitalization, Other)
  Sender: FDA-Public Use
  Company Number: US-BRISTOL-MYERS SQUIBB COMPANY-2022-090552

PATIENT
  Age: 81 Year
  Sex: Male
  Weight: 90.718 kg

DRUGS (18)
  1. REVLIMID [Suspect]
     Active Substance: LENALIDOMIDE
     Indication: Plasma cell myeloma
     Route: 048
     Dates: start: 20150713
  2. REVLIMID [Suspect]
     Active Substance: LENALIDOMIDE
     Dosage: 10 MG ONE CAPSULE DAILY
     Route: 048
  3. FUROSEMIDE [Concomitant]
     Active Substance: FUROSEMIDE
  4. SPIRONOLACTONE [Concomitant]
     Active Substance: SPIRONOLACTONE
  5. POTASSIUM CHLORIDE [Concomitant]
     Active Substance: POTASSIUM CHLORIDE
  6. IRON FERROUS [Concomitant]
  7. VITAMIN C [Concomitant]
     Active Substance: ASCORBIC ACID
  8. VITAMIN B12 [Concomitant]
     Active Substance: CYANOCOBALAMIN
  9. VITAMINS NOS [Concomitant]
     Active Substance: VITAMINS
  10. DEXAMETHASONE [Concomitant]
     Active Substance: DEXAMETHASONE
  11. XGEVA [Concomitant]
     Active Substance: DENOSUMAB
  12. DARZALEX [Concomitant]
     Active Substance: DARATUMUMAB
  13. ELIQUIS [Concomitant]
     Active Substance: APIXABAN
  14. PRAVASTATIN SODIUM [Concomitant]
     Active Substance: PRAVASTATIN SODIUM
  15. CALCIUM [Concomitant]
     Active Substance: CALCIUM
  16. LOPERAMIDE [Concomitant]
     Active Substance: LOPERAMIDE
  17. DONEPEZIL [Concomitant]
     Active Substance: DONEPEZIL
  18. LENALIDOMIDE [Concomitant]
     Active Substance: LENALIDOMIDE
     Indication: Product used for unknown indication
     Route: 065

REACTIONS (4)
  - Cellulitis [Unknown]
  - Dermatitis [Unknown]
  - Diarrhoea [Unknown]
  - Product substitution issue [Unknown]
